FAERS Safety Report 16747149 (Version 1)
Quarter: 2019Q3

REPORT INFORMATION
  Report Type: Spontaneous
  Country: US (occurrence: US)
  Receive Date: 20190827
  Receipt Date: 20190827
  Transmission Date: 20191005
  Serious: No
  Sender: FDA-Public Use
  Company Number: US-SA-2019SA237923

PATIENT
  Sex: Female

DRUGS (10)
  1. SUMATRIPTAN. [Concomitant]
     Active Substance: SUMATRIPTAN
  2. FLUTICASONE. [Concomitant]
     Active Substance: FLUTICASONE
  3. AMLODIPINE [AMLODIPINE BESILATE] [Concomitant]
     Active Substance: AMLODIPINE BESYLATE
  4. DULOXETINE. [Concomitant]
     Active Substance: DULOXETINE
  5. RIZATRIPTAN. [Concomitant]
     Active Substance: RIZATRIPTAN
     Dosage: 10 MG
  6. VALACYCLOVIR [Concomitant]
     Active Substance: VALACYCLOVIR HYDROCHLORIDE
     Dosage: 1 G
  7. ATORVASTATIN [Concomitant]
     Active Substance: ATORVASTATIN
  8. LEVOTHYROXIN [Concomitant]
     Active Substance: LEVOTHYROXINE
  9. ZOLPIDEM TARTATE [Concomitant]
     Active Substance: ZOLPIDEM TARTRATE
  10. AUBAGIO [Suspect]
     Active Substance: TERIFLUNOMIDE
     Dosage: 1 DF, QD
     Route: 048

REACTIONS (2)
  - Surgery [Not Recovered/Not Resolved]
  - Product dose omission [Not Recovered/Not Resolved]
